FAERS Safety Report 5178926-3 (Version None)
Quarter: 2006Q4

REPORT INFORMATION
  Report Type: 
  Country: None (occurrence: None)
  Receive Date: 20061219
  Receipt Date: 20061213
  Transmission Date: 20070319
  Serious: Yes (Life-Threatening)
  Sender: FDA-Public Use
  Company Number: CN-BAYER-200616305GDS

PATIENT
  Age: 59 Year
  Sex: Female
  Weight: 77 kg

DRUGS (9)
  1. SORAFENIB [Suspect]
     Indication: RENAL CELL CARCINOMA STAGE UNSPECIFIED
     Dosage: AS USED: 200/400 MG
     Route: 048
     Dates: start: 20061128, end: 20061212
  2. SORAFENIB [Suspect]
     Dosage: TOTAL DAILY DOSE: 800 MG
     Route: 048
     Dates: start: 20061126, end: 20061127
  3. COAPROVEL [Concomitant]
     Indication: HYPERTENSION
     Route: 048
     Dates: start: 20061001
  4. APROVEL [Concomitant]
     Indication: HYPERTENSION
     Route: 048
     Dates: start: 20061001
  5. NORVASC [Concomitant]
     Indication: HYPERTENSION
     Route: 048
     Dates: start: 20061001
  6. BETALOC [Concomitant]
     Indication: HYPERTENSION
     Dosage: TOTAL DAILY DOSE: 25 MG
     Route: 048
     Dates: start: 20061001
  7. ESSENTIALE [Concomitant]
     Indication: ASPARTATE AMINOTRANSFERASE INCREASED
     Dosage: TOTAL DAILY DOSE: 1368 MG
     Route: 048
     Dates: start: 20061125, end: 20061211
  8. NEUQUINON [Concomitant]
     Indication: CORONARY ARTERY DISEASE
     Dosage: TOTAL DAILY DOSE: 30 MG
     Route: 048
     Dates: start: 20061125, end: 20061211
  9. FUFANGDANSHENDIWAN (TRADITIONAL DRUG - COMPOUND SALVIA MILTIORRHIZA) [Concomitant]
     Indication: CORONARY ARTERY DISEASE
     Route: 048
     Dates: start: 20061125, end: 20061211

REACTIONS (3)
  - APHASIA [None]
  - CEREBRAL ARTERY EMBOLISM [None]
  - HEMIPARESIS [None]
